FAERS Safety Report 24706753 (Version 8)
Quarter: 2025Q3

REPORT INFORMATION
  Report Type: Spontaneous
  Country: IN (occurrence: IN)
  Receive Date: 20241206
  Receipt Date: 20250717
  Transmission Date: 20251020
  Serious: Yes (Other)
  Sender: PFIZER
  Company Number: IN-PFIZER INC-PV202400126280

PATIENT
  Age: 44 Year
  Sex: Female

DRUGS (2)
  1. LORLATINIB [Suspect]
     Active Substance: LORLATINIB
     Indication: Lung adenocarcinoma
     Dosage: 100 MG, 1X/DAY (FOR 1 MONTH)
     Route: 048
     Dates: start: 20240727
  2. ROSUVASTATIN [Concomitant]
     Active Substance: ROSUVASTATIN
     Dosage: 20 MG, 1X/DAY (1 TAB) AT BEDTIME

REACTIONS (20)
  - Lung adenocarcinoma [Unknown]
  - Malignant neoplasm progression [Unknown]
  - Electrocardiogram QT prolonged [Unknown]
  - Chest discomfort [Unknown]
  - Mobility decreased [Unknown]
  - Pleural effusion [Unknown]
  - Cholecystectomy [Unknown]
  - Heart rate increased [Unknown]
  - Blood triglycerides increased [Not Recovered/Not Resolved]
  - Dyslipidaemia [Unknown]
  - Hepatic steatosis [Unknown]
  - Cholelithiasis [Unknown]
  - Abdominal pain [Unknown]
  - Asthenia [Unknown]
  - Fatigue [Unknown]
  - Pain [Unknown]
  - Decreased appetite [Unknown]
  - Cyanosis [Unknown]
  - Dehydration [Unknown]
  - Hypophagia [Unknown]

NARRATIVE: CASE EVENT DATE: 20240101
